FAERS Safety Report 17366106 (Version 1)
Quarter: 2020Q1

REPORT INFORMATION
  Report Type: Spontaneous
  Country: US (occurrence: US)
  Receive Date: 20200204
  Receipt Date: 20200204
  Transmission Date: 20200409
  Serious: No
  Sender: FDA-Public Use
  Company Number: US-AMGEN-USASP2020016912

PATIENT
  Sex: Female

DRUGS (1)
  1. ENBREL [Suspect]
     Active Substance: ETANERCEPT
     Indication: DRY SKIN
     Dosage: 50 MILLIGRAM, 2 TIMES/WK
     Route: 058

REACTIONS (2)
  - Asthma [Unknown]
  - Off label use [Unknown]
